FAERS Safety Report 21680896 (Version 1)
Quarter: 2022Q4

REPORT INFORMATION
  Report Type: Spontaneous
  Country: US (occurrence: None)
  Receive Date: 20221202
  Receipt Date: 20221202
  Transmission Date: 20230113
  Serious: Yes (Hospitalization)
  Sender: FDA-Public Use
  Company Number: None

PATIENT
  Age: 6 Year
  Sex: Female
  Weight: 23.8 kg

DRUGS (5)
  1. DEXAMETHASONE [Suspect]
     Active Substance: DEXAMETHASONE
     Dates: end: 20221018
  2. DOXORUBICIN HYDROCHLORIDE [Suspect]
     Active Substance: DOXORUBICIN HYDROCHLORIDE
     Dates: end: 20221019
  3. METHOTREXATE [Suspect]
     Active Substance: METHOTREXATE
     Dates: end: 20221012
  4. ONCASPAR [Suspect]
     Active Substance: PEGASPARGASE
     Dates: end: 20221015
  5. VINCRISTINE SULFATE [Suspect]
     Active Substance: VINCRISTINE SULFATE
     Dates: end: 20221019

REACTIONS (10)
  - Dehydration [None]
  - Vomiting [None]
  - Nausea [None]
  - Diarrhoea [None]
  - Cryptosporidiosis infection [None]
  - Escherichia sepsis [None]
  - Pneumonia [None]
  - Pleural effusion [None]
  - Rhinovirus infection [None]
  - Enterovirus infection [None]

NARRATIVE: CASE EVENT DATE: 20221026
